FAERS Safety Report 4466697-5 (Version None)
Quarter: 2004Q4

REPORT INFORMATION
  Report Type: 
  Country: None (occurrence: None)
  Receive Date: 20041001
  Receipt Date: 20041001
  Transmission Date: 20050328
  Serious: Yes (Other)
  Sender: FDA-Public Use
  Company Number: None

PATIENT
  Age: 56 Year
  Sex: Female
  Weight: 69.8539 kg

DRUGS (2)
  1. LIPITOR [Suspect]
     Indication: HIGH DENSITY LIPOPROTEIN DECREASED
     Dosage: ONE DAILY ORAL
     Route: 048
     Dates: start: 20040816, end: 20040928
  2. LIPITOR [Suspect]
     Indication: LOW DENSITY LIPOPROTEIN INCREASED
     Dosage: ONE DAILY ORAL
     Route: 048
     Dates: start: 20040816, end: 20040928

REACTIONS (3)
  - AMNESIA [None]
  - COGNITIVE DISORDER [None]
  - NEURALGIA [None]
